FAERS Safety Report 24952589 (Version 1)
Quarter: 2025Q1

REPORT INFORMATION
  Report Type: Spontaneous
  Country: AT (occurrence: AT)
  Receive Date: 20250210
  Receipt Date: 20250210
  Transmission Date: 20250409
  Serious: Yes (Other)
  Sender: Norvium Bioscience
  Company Number: AT-Norvium Bioscience LLC-079875

PATIENT
  Age: 22 Year
  Sex: Male

DRUGS (1)
  1. VALPROATE SODIUM [Suspect]
     Active Substance: VALPROATE SODIUM
     Indication: Generalised tonic-clonic seizure

REACTIONS (3)
  - Fatigue [Unknown]
  - Electroencephalogram abnormal [Recovered/Resolved]
  - Petit mal epilepsy [Recovered/Resolved]
